FAERS Safety Report 6456057-X (Version None)
Quarter: 2009Q4

REPORT INFORMATION
  Report Type: 
  Country: None (occurrence: None)
  Receive Date: 20091125
  Receipt Date: 20091117
  Transmission Date: 20100525
  Serious: Yes (Death)
  Sender: FDA-Public Use
  Company Number: US-SOLVAY-00209007000

PATIENT
  Age: 23353 Day
  Sex: Male
  Weight: 99.5 kg

DRUGS (20)
  1. DILTIAZEM HCL [Concomitant]
     Indication: HYPERTENSION
     Dosage: DAILY DOSE: 360 MILLIGRAM(S)
     Route: 048
     Dates: start: 20030101, end: 20091107
  2. ANDROGEL [Suspect]
     Indication: BLOOD TESTOSTERONE DECREASED
     Dosage: DAILY DOSE: 7.5 GRAM(S), ROUTE: TRANSDERMAL
     Route: 050
     Dates: start: 20070510, end: 20091107
  3. LISINOPRIL [Concomitant]
     Indication: HYPERTENSION
     Dosage: DAILY DOSE: 40 MILLIGRAM(S)
     Route: 048
     Dates: start: 20010101, end: 20091107
  4. TORSEMIDE [Concomitant]
     Indication: HYPERTENSION
     Dosage: DAILY DOSE: 20 MILLIGRAM(S)
     Route: 048
     Dates: start: 20010101, end: 20091107
  5. PROTONIX [Concomitant]
     Indication: GASTROOESOPHAGEAL REFLUX DISEASE
     Dosage: DAILY DOSE: 80 MILLIGRAM(S)
     Route: 048
     Dates: start: 20010101
  6. LANTUS [Concomitant]
     Indication: DIABETES MELLITUS
     Dosage: DAILY DOSE:  100 U/ML, AS USED: 100 U/ML, FREQUENCY: ONCE A DAY
     Route: 065
     Dates: start: 20000101
  7. ALLOPURINOL [Concomitant]
     Indication: GOUT
     Dosage: DAILY DOSE: 300 MILLIGRAM(S)
     Route: 048
     Dates: start: 20010101
  8. HUMALOG PER SLIDING SCALE [Concomitant]
     Indication: DIABETES MELLITUS
     Dosage: DAILY DOSE:  UNKNOWN, ROUTE: SCIN, FREQUENCY: ONCE A DAY
     Route: 050
     Dates: start: 20010101
  9. WELLBUTRIN [Concomitant]
     Indication: DEPRESSION
     Dosage: DAILY DOSE: 300 MILLIGRAM(S)
     Route: 048
     Dates: start: 20030101
  10. NEURONTIN [Concomitant]
     Indication: DIABETIC NEUROPATHY
     Dosage: DAILY DOSE: 800 MILLIGRAM(S)
     Route: 048
     Dates: start: 20010101
  11. SIMVASTATIN [Concomitant]
     Indication: HYPERLIPIDAEMIA
     Dosage: DAILY DOSE: 10 MILLIGRAM(S)
     Route: 048
     Dates: start: 20000101
  12. COLACE [Concomitant]
     Indication: DRUG USE FOR UNKNOWN INDICATION
     Dosage: DAILY DOSE:  UNKNOWN, FRQUENCY: TWICE A DAY
     Route: 065
  13. ASPIRIN [Concomitant]
     Indication: DRUG USE FOR UNKNOWN INDICATION
     Dosage: DAILY DOSE: 81 MILLIGRAM(S)
     Route: 065
  14. TYLENOL (CAPLET) [Concomitant]
     Indication: DRUG USE FOR UNKNOWN INDICATION
     Dosage: DAILY DOSE: 3000 MILLIGRAM(S)
     Route: 065
  15. MULTI-VITAMINS [Concomitant]
     Indication: DRUG USE FOR UNKNOWN INDICATION
     Dosage: DAILY DOSE:  UNKNOWN
     Route: 065
  16. CIALIS [Concomitant]
     Indication: DRUG USE FOR UNKNOWN INDICATION
     Dosage: DAILY DOSE:  UNKNOWN, AS USED: 10 MILLIGRAM(S), FREQUENCY: AS NEEDED
     Route: 065
  17. KLOR-CON [Concomitant]
     Indication: DRUG USE FOR UNKNOWN INDICATION
     Dosage: DAILY DOSE: 20 MILLIEQUIVALENT(S), ROUTE: BY MOUTH
     Route: 050
  18. VITAMIN D [Concomitant]
     Indication: DRUG USE FOR UNKNOWN INDICATION
     Dosage: DAILY DOSE:  UNKNOWN, AS USED: 50000 UNITS, FREQUENCY: ONE PER WEEK FOR 12 CONSECUTIVE WEEKS
     Route: 065
  19. CARMOL [Concomitant]
     Indication: DRUG USE FOR UNKNOWN INDICATION
     Dosage: DAILY DOSE:  UNKNOWN, 40% LOTION APPLY TO FEET AND LEGS, FREQUENCY: ONCE A DAY
     Route: 065
  20. BENZOYL PEROXIDE [Concomitant]
     Indication: DRUG USE FOR UNKNOWN INDICATION
     Dosage: DAILY DOSE:  UNKNOWN, 5% LIQUID APPLY AS WASH, FREQUENCY: ONCE DAILY AT BEDTIME
     Route: 065

REACTIONS (1)
  - DEATH [None]
